FAERS Safety Report 6529147-0 (Version None)
Quarter: 2010Q1

REPORT INFORMATION
  Report Type: 
  Country: None (occurrence: None)
  Receive Date: 20100107
  Receipt Date: 20091230
  Transmission Date: 20100710
  Serious: Yes (Other)
  Sender: FDA-Public Use
  Company Number: GB-TEVA-219737ISR

PATIENT
  Age: 81 Year
  Sex: Male

DRUGS (2)
  1. FINASTERIDE [Suspect]
     Indication: PROSTATOMEGALY
     Route: 048
     Dates: start: 20091101
  2. FINASTERIDE [Concomitant]

REACTIONS (4)
  - AMNESIA [None]
  - COORDINATION ABNORMAL [None]
  - FALL [None]
  - HALLUCINATION [None]
